FAERS Safety Report 4598168-X (Version None)
Quarter: 2005Q1

REPORT INFORMATION
  Report Type: 
  Country: None (occurrence: None)
  Receive Date: 20050301
  Receipt Date: 20050301
  Transmission Date: 20050727
  Serious: Yes (Hospitalization)
  Sender: FDA-Public Use
  Company Number: None

PATIENT
  Age: 57 Year
  Sex: Male
  Weight: 69.1 kg

DRUGS (9)
  1. OLANZAPINE [Suspect]
     Indication: MAJOR DEPRESSION
     Dosage: 10 MG Q AM AND 15 MG Q PM
     Dates: start: 20000801
  2. SERTRALINE HCL [Concomitant]
  3. CLONAZEPAM [Concomitant]
  4. TRAZODONE HCL [Concomitant]
  5. OXYCODONE AND ACETAMINOPHEN [Concomitant]
  6. METHADONE [Concomitant]
  7. HYDROCHLOROTHIAZIDE [Concomitant]
  8. DOCUSATE [Concomitant]
  9. SENNA [Concomitant]

REACTIONS (4)
  - GRAND MAL CONVULSION [None]
  - LABORATORY TEST ABNORMAL [None]
  - MEDICATION ERROR [None]
  - NEUROLEPTIC MALIGNANT SYNDROME [None]
